FAERS Safety Report 7833921-8 (Version None)
Quarter: 2011Q4

REPORT INFORMATION
  Report Type: 
  Country: None (occurrence: None)
  Receive Date: 20111024
  Receipt Date: 20111014
  Transmission Date: 20120403
  Serious: Yes (Hospitalization)
  Sender: FDA-Public Use
  Company Number: FR-PFIZER INC-2010178409

PATIENT
  Age: 60 Year
  Sex: Female

DRUGS (8)
  1. PRAVASTATIN [Suspect]
     Indication: HYPERCHOLESTEROLAEMIA
     Dosage: 10 MG, DAILY
     Route: 048
  2. MYCOPHENOLATE MOFETIL (CELLCEPT) [Suspect]
     Indication: RENAL TRANSPLANT
     Dosage: 500 MG, 3X/DAY
     Route: 048
     Dates: start: 20040322
  3. RAPAMUNE [Suspect]
     Indication: RENAL TRANSPLANT
     Dosage: UNK
     Route: 048
     Dates: start: 20040316, end: 20101112
  4. PAROXETINE HCL [Suspect]
     Dosage: 20 MG, DAILY
     Route: 048
  5. ATENOLOL [Suspect]
     Dosage: 25 MG, 1X/DAY
     Route: 048
  6. SPECIAFOLDINE [Suspect]
     Indication: HYPERTENSION
     Dosage: 5 MG, DAILY
     Route: 048
  7. MEDROL [Suspect]
     Dosage: 2 MG, DAILY
  8. VALSARTAN [Suspect]
     Indication: HYPERTENSION
     Dosage: 40 MG, DAILY
     Route: 048

REACTIONS (3)
  - GENERAL PHYSICAL HEALTH DETERIORATION [None]
  - PYREXIA [None]
  - INTERSTITIAL LUNG DISEASE [None]
